FAERS Safety Report 12922301 (Version 8)
Quarter: 2023Q1

REPORT INFORMATION
  Report Type: Report from Study
  Country: US (occurrence: US)
  Receive Date: 20161108
  Receipt Date: 20230310
  Transmission Date: 20230417
  Serious: Yes (Other)
  Sender: FDA-Public Use
  Company Number: US-PFIZER INC-2016479227

PATIENT
  Age: 68 Year
  Sex: Female
  Weight: 81.5 kg

DRUGS (5)
  1. LYRICA [Suspect]
     Active Substance: PREGABALIN
     Indication: Pain
     Dosage: 300 MILLIGRAM, TID (300 MG, 3X/DAY)
     Route: 065
  2. LYRICA [Suspect]
     Active Substance: PREGABALIN
     Indication: Balance disorder
     Dosage: 150 MILLIGRAM, 150 MG
     Route: 065
     Dates: start: 2006
  3. LYRICA [Suspect]
     Active Substance: PREGABALIN
     Indication: Head discomfort
     Dosage: 300 MILLIGRAM, BID (300 MG, 2X/DAY)
     Route: 048
     Dates: start: 2017
  4. LYRICA [Suspect]
     Active Substance: PREGABALIN
     Indication: Fibromyalgia
     Dosage: 1 DOSAGE FORM, QD (1 DF, 1X/DAY (I CUT BACK TO ONE PILL A DAY))
     Route: 065
  5. LYRICA [Suspect]
     Active Substance: PREGABALIN
     Dosage: 300 MILLIGRAM, BID (300 MG, 2X/DAY)
     Route: 048

REACTIONS (8)
  - Fall [Unknown]
  - Ankle fracture [Unknown]
  - Illness [Unknown]
  - Body height decreased [Unknown]
  - Loss of personal independence in daily activities [Unknown]
  - Prescribed overdose [Unknown]
  - Intentional product use issue [Unknown]
  - Inappropriate schedule of product administration [Unknown]

NARRATIVE: CASE EVENT DATE: 20190401
